FAERS Safety Report 4710806-7 (Version None)
Quarter: 2005Q3

REPORT INFORMATION
  Report Type: 
  Country: None (occurrence: None)
  Receive Date: 20050706
  Receipt Date: 20050706
  Transmission Date: 20060218
  Serious: Yes (Other)
  Sender: FDA-Public Use
  Company Number: None

PATIENT
  Sex: Female
  Weight: 93 kg

DRUGS (2)
  1. CYCLOPHOSPHAMIDE [Suspect]
     Indication: BREAST CANCER
     Dosage: 600 MG/M2
     Dates: start: 20050425
  2. DOXORUBICIN [Suspect]
     Dosage: 60MG/M2 Q 14 DAYS X 6 CYCLES

REACTIONS (9)
  - BACTERIA URINE IDENTIFIED [None]
  - CANDIDIASIS [None]
  - DIARRHOEA [None]
  - DYSURIA [None]
  - HAEMORRHOIDS [None]
  - PAIN [None]
  - PULMONARY CONGESTION [None]
  - PYREXIA [None]
  - WHITE BLOOD CELL COUNT DECREASED [None]
